FAERS Safety Report 5786219-6 (Version None)
Quarter: 2008Q2

REPORT INFORMATION
  Report Type: 
  Country: None (occurrence: None)
  Receive Date: 20080624
  Receipt Date: 20070801
  Transmission Date: 20081010
  Serious: No
  Sender: FDA-Public Use
  Company Number: US-ASTRAZENECA-2007UW18462

PATIENT
  Sex: Female

DRUGS (2)
  1. PULMICORT RESPULES [Suspect]
     Indication: CHRONIC OBSTRUCTIVE PULMONARY DISEASE
     Route: 055
     Dates: start: 20070701
  2. MUCOMYST [Concomitant]

REACTIONS (2)
  - DYSPNOEA [None]
  - RESPIRATORY RATE INCREASED [None]
